FAERS Safety Report 4704207-5 (Version None)
Quarter: 2005Q2

REPORT INFORMATION
  Report Type: 
  Country: None (occurrence: None)
  Receive Date: 20050628
  Receipt Date: 20050613
  Transmission Date: 20051028
  Serious: Yes (Other)
  Sender: FDA-Public Use
  Company Number: SP00448

PATIENT
  Age: 33 Year
  Sex: Female
  Weight: 54.4316 kg

DRUGS (3)
  1. XIFAXAN [Suspect]
     Indication: DIARRHOEA
     Dosage: 200 MG, TID; ORAL
     Route: 048
     Dates: start: 20050501, end: 20050501
  2. XIFAXAN [Suspect]
     Indication: DIARRHOEA
     Dosage: 200 MG, TID; ORAL
     Route: 048
     Dates: start: 20050611, end: 20050612
  3. HERBAL MEDICATIONS [Concomitant]

REACTIONS (3)
  - EYE DISORDER [None]
  - FACIAL PALSY [None]
  - PARAESTHESIA [None]
